FAERS Safety Report 19521722 (Version 2)
Quarter: 2021Q3

REPORT INFORMATION
  Report Type: Spontaneous
  Country: IT (occurrence: IT)
  Receive Date: 20210712
  Receipt Date: 20210818
  Transmission Date: 20211014
  Serious: Yes (Other)
  Sender: FDA-Public Use
  Company Number: IT-PFIZER INC-2021793105

PATIENT
  Age: 44 Year
  Sex: Female

DRUGS (2)
  1. DOXORUBICIN HCL [Suspect]
     Active Substance: DOXORUBICIN HYDROCHLORIDE
     Indication: BREAST CANCER
     Dosage: 120 MG, CYCLIC
     Route: 042
     Dates: start: 20210401, end: 20210617
  2. CYCLOPHOSPHAMIDE. [Suspect]
     Active Substance: CYCLOPHOSPHAMIDE
     Indication: BREAST CANCER
     Dosage: 1200 MG, CYCLIC
     Route: 042
     Dates: start: 20210401, end: 20210617

REACTIONS (1)
  - Left ventricular failure [Unknown]

NARRATIVE: CASE EVENT DATE: 20210617
